FAERS Safety Report 15254901 (Version 1)
Quarter: 2018Q3

REPORT INFORMATION
  Report Type: Spontaneous
  Country: FR (occurrence: FR)
  Receive Date: 20180808
  Receipt Date: 20180808
  Transmission Date: 20181010
  Serious: Yes (Other)
  Sender: FDA-Public Use
  Company Number: FR-ASTRAZENECA-2018SE99054

PATIENT
  Age: 27 Year
  Sex: Male
  Weight: 60 kg

DRUGS (3)
  1. MOPRAL [Suspect]
     Active Substance: OMEPRAZOLE
     Indication: HELICOBACTER INFECTION
     Dosage: AT LEAST ONCE A WEEK
     Route: 048
  2. MOPRAL [Suspect]
     Active Substance: OMEPRAZOLE
     Indication: HELICOBACTER INFECTION
     Dosage: THREE?QUARTER IN THE MORNING AND ONE QUARTER IN THE EVENING
     Route: 048
  3. MOPRAL [Suspect]
     Active Substance: OMEPRAZOLE
     Indication: HELICOBACTER INFECTION
     Route: 048
     Dates: start: 2014

REACTIONS (8)
  - Gastrooesophageal sphincter insufficiency [Not Recovered/Not Resolved]
  - Red blood cell count decreased [Unknown]
  - Pain [Unknown]
  - White blood cell count decreased [Unknown]
  - Intentional product misuse [Unknown]
  - Vitamin B12 decreased [Unknown]
  - Off label use [Unknown]
  - Weight decreased [Unknown]

NARRATIVE: CASE EVENT DATE: 2014
